FAERS Safety Report 16222252 (Version 1)
Quarter: 2019Q2

REPORT INFORMATION
  Report Type: Report from Study
  Country: BR (occurrence: BR)
  Receive Date: 20190422
  Receipt Date: 20190422
  Transmission Date: 20190711
  Serious: Yes (Other)
  Sender: FDA-Public Use
  Company Number: PHHY2019BR090376

PATIENT
  Sex: Female

DRUGS (1)
  1. EXELON PATCH [Suspect]
     Active Substance: RIVASTIGMINE
     Indication: PRODUCT USED FOR UNKNOWN INDICATION
     Dosage: 4.6 MG, QD PATCH 5 (CM2)
     Route: 062

REACTIONS (5)
  - Incorrect product administration duration [Unknown]
  - Speech disorder [Recovered/Resolved]
  - Wheezing [Recovering/Resolving]
  - Asthmatic crisis [Recovered/Resolved]
  - Feeling abnormal [Unknown]
